FAERS Safety Report 17532805 (Version 1)
Quarter: 2020Q1

REPORT INFORMATION
  Report Type: Spontaneous
  Country: US (occurrence: US)
  Receive Date: 20200304
  Receipt Date: 20200304
  Transmission Date: 20200409
  Serious: Yes (Hospitalization)
  Sender: FDA-Public Use
  Company Number: None

PATIENT
  Age: 83 Year
  Sex: Female

DRUGS (1)
  1. PROMACTA [Suspect]
     Active Substance: ELTROMBOPAG OLAMINE
     Indication: IMMUNE THROMBOCYTOPENIC PURPURA
     Dosage: ?          OTHER FREQUENCY:EVERY MON, WED, FR;?
     Route: 048
     Dates: start: 20180613

REACTIONS (1)
  - Bronchitis [None]

NARRATIVE: CASE EVENT DATE: 20191201
